FAERS Safety Report 9403669 (Version 3)
Quarter: 2014Q2

REPORT INFORMATION
  Report Type: Report from Study
  Country: GB (occurrence: GB)
  Receive Date: 20130717
  Receipt Date: 20140425
  Transmission Date: 20141212
  Serious: Yes (Hospitalization, Other)
  Sender: FDA-Public Use
  Company Number: GB-ROCHE-1249199

PATIENT
  Age: 92 Year
  Sex: Female
  Weight: 73.5 kg

DRUGS (10)
  1. RANIBIZUMAB [Suspect]
     Indication: AGE-RELATED MACULAR DEGENERATION
     Route: 050
     Dates: start: 20120126
  2. RANIBIZUMAB [Suspect]
     Route: 050
     Dates: start: 20121108
  3. RANIBIZUMAB [Suspect]
     Route: 050
     Dates: start: 20121210
  4. RANIBIZUMAB [Suspect]
     Route: 050
     Dates: start: 20121219
  5. ATENOLOL [Concomitant]
     Route: 065
     Dates: start: 20121202
  6. ATENOLOL [Concomitant]
     Route: 065
     Dates: start: 20121210
  7. BENDROFLUMETHIAZIDE [Concomitant]
     Route: 065
     Dates: start: 20121202
  8. BENDROFLUMETHIAZIDE [Concomitant]
     Route: 065
     Dates: start: 20121210
  9. PERINDOPRIL [Concomitant]
     Route: 065
     Dates: start: 20121202
  10. PERINDOPRIL [Concomitant]
     Route: 065
     Dates: start: 20121210

REACTIONS (3)
  - Fall [Unknown]
  - Humerus fracture [Recovering/Resolving]
  - Ankle fracture [Unknown]
